FAERS Safety Report 16954873 (Version 1)
Quarter: 2019Q4

REPORT INFORMATION
  Report Type: Spontaneous
  Country: DE (occurrence: DE)
  Receive Date: 20191024
  Receipt Date: 20191024
  Transmission Date: 20200122
  Serious: Yes (Hospitalization)
  Sender: FDA-Public Use
  Company Number: DE-ACCORD-158544

PATIENT
  Age: 65 Year
  Sex: Male

DRUGS (9)
  1. RANITIDINE. [Concomitant]
     Active Substance: RANITIDINE
  2. FLUOROURACIL ACCORD [Suspect]
     Active Substance: FLUOROURACIL
     Indication: RECTAL CANCER
     Route: 042
     Dates: start: 20191014, end: 20191014
  3. IRINOTECAN [Suspect]
     Active Substance: IRINOTECAN
     Indication: RECTAL CANCER
     Route: 042
     Dates: start: 20191014, end: 20191014
  4. BEVACIZUMAB. [Suspect]
     Active Substance: BEVACIZUMAB
     Indication: RECTAL CANCER
     Route: 042
     Dates: start: 20191014, end: 20191014
  5. TAVEGIL [Concomitant]
     Active Substance: CLEMASTINE FUMARATE
  6. FOLINIC ACID [Suspect]
     Active Substance: LEUCOVORIN
     Indication: RECTAL CANCER
     Route: 042
     Dates: start: 20191014, end: 20191014
  7. ALIZAPRIDE/ALIZAPRIDE HYDROCHLORIDE [Concomitant]
  8. ONDANSETRON [Concomitant]
     Active Substance: ONDANSETRON
  9. DEXAMETHASONE. [Concomitant]
     Active Substance: DEXAMETHASONE

REACTIONS (1)
  - Erythema [Unknown]

NARRATIVE: CASE EVENT DATE: 20191014
